FAERS Safety Report 7056767-X (Version None)
Quarter: 2010Q4

REPORT INFORMATION
  Report Type: 
  Country: None (occurrence: None)
  Receive Date: 20101022
  Receipt Date: 20101014
  Transmission Date: 20110411
  Serious: Yes (Hospitalization)
  Sender: FDA-Public Use
  Company Number: US-BIOGENIDEC-2010BI035534

PATIENT
  Age: 56 Year
  Sex: Female
  Weight: 79 kg

DRUGS (4)
  1. AVONEX [Suspect]
     Indication: MULTIPLE SCLEROSIS
     Route: 030
     Dates: start: 20060425
  2. STEROIDS (NOS) [Concomitant]
     Indication: MULTIPLE SCLEROSIS RELAPSE
     Route: 042
  3. BACLOFEN [Concomitant]
     Indication: MUSCLE SPASMS
     Dates: start: 20000101
  4. LIPITOR [Concomitant]
     Indication: BLOOD CHOLESTEROL INCREASED
     Route: 048
     Dates: start: 20050101

REACTIONS (10)
  - DEMENTIA [None]
  - FALL [None]
  - GLUCOSE TOLERANCE IMPAIRED [None]
  - LOWER LIMB FRACTURE [None]
  - MEMORY IMPAIRMENT [None]
  - MULTIPLE SCLEROSIS RELAPSE [None]
  - MUSCLE SPASMS [None]
  - SEPSIS [None]
  - STAPHYLOCOCCAL INFECTION [None]
  - URINARY TRACT INFECTION [None]
